FAERS Safety Report 8561287-7 (Version None)
Quarter: 2012Q3

REPORT INFORMATION
  Report Type: 
  Country: None (occurrence: None)
  Receive Date: 20120802
  Receipt Date: 20120725
  Transmission Date: 20120928
  Serious: Yes (Hospitalization)
  Sender: FDA-Public Use
  Company Number: US-009507513-1204USA01891

PATIENT

DRUGS (8)
  1. BONIVA [Suspect]
     Indication: OSTEOPOROSIS
     Dosage: 150 MG, CYCLICAL
     Route: 048
     Dates: start: 20071001, end: 20091001
  2. FOSAMAX [Suspect]
     Indication: OSTEOPOROSIS
     Dosage: 35 MG, QW
     Route: 048
  3. PROZAC [Concomitant]
     Indication: DEPRESSION
     Dosage: UNK
     Route: 048
     Dates: start: 19970101
  4. CALCIUM CITRATE [Concomitant]
     Dosage: 500 MG, UNK
     Dates: start: 19980101
  5. PROZAC [Concomitant]
     Indication: ANXIETY
  6. FOSAMAX [Suspect]
     Dosage: 70 MG, QW
     Route: 048
     Dates: start: 20010926, end: 20070901
  7. GLUCOSAMINE SULFATE [Concomitant]
     Dosage: 1500 UNK, UNK
     Route: 048
     Dates: start: 19990101
  8. OMEGA-3 MARINE TRIGLYCERIDES [Concomitant]
     Dosage: 1000 MG, UNK
     Route: 048

REACTIONS (31)
  - INSOMNIA [None]
  - HOT FLUSH [None]
  - OSTEOARTHRITIS [None]
  - FIBROCYSTIC BREAST DISEASE [None]
  - SEBORRHOEIC DERMATITIS [None]
  - RESTLESS LEGS SYNDROME [None]
  - BACK PAIN [None]
  - FEMUR FRACTURE [None]
  - GASTROOESOPHAGEAL REFLUX DISEASE [None]
  - FALL [None]
  - BLOOD TRIGLYCERIDES INCREASED [None]
  - BURSITIS [None]
  - NEOPLASM SKIN [None]
  - NON-CARDIAC CHEST PAIN [None]
  - INTERVERTEBRAL DISC DEGENERATION [None]
  - PAIN IN EXTREMITY [None]
  - BLOOD URINE [None]
  - POLYDIPSIA [None]
  - IRON DEFICIENCY ANAEMIA [None]
  - UPPER RESPIRATORY TRACT INFECTION [None]
  - HIATUS HERNIA [None]
  - ARTHRALGIA [None]
  - HYPOAESTHESIA [None]
  - DEVICE FAILURE [None]
  - CONTUSION [None]
  - BLOOD GLUCOSE INCREASED [None]
  - BLOOD UREA INCREASED [None]
  - DYSPNOEA [None]
  - INAPPROPRIATE SCHEDULE OF DRUG ADMINISTRATION [None]
  - BLOOD CHOLESTEROL INCREASED [None]
  - BUNION [None]
